FAERS Safety Report 6100418-5 (Version None)
Quarter: 2009Q1

REPORT INFORMATION
  Report Type: 
  Country: None (occurrence: None)
  Receive Date: 20090227
  Receipt Date: 20090227
  Transmission Date: 20090719
  Serious: Yes (Other)
  Sender: FDA-Public Use
  Company Number: None

PATIENT
  Sex: Female
  Weight: 95 kg

DRUGS (1)
  1. SORAFENIB 200 MG BAYER [Suspect]
     Indication: BREAST CANCER METASTATIC
     Dosage: 200 MG BID PO
     Route: 048
     Dates: start: 20090211, end: 20090222

REACTIONS (2)
  - ABDOMINAL PAIN [None]
  - LIPASE INCREASED [None]
